FAERS Safety Report 24553696 (Version 1)
Quarter: 2024Q4

REPORT INFORMATION
  Report Type: Spontaneous
  Country: US (occurrence: US)
  Receive Date: 20241028
  Receipt Date: 20241028
  Transmission Date: 20250115
  Serious: No
  Sender: Haleon PLC
  Company Number: US-HALEON-2203516

PATIENT
  Age: 34 Year

DRUGS (3)
  1. SENSODYNE SENSITIVITY AND GUM WHITENING [Suspect]
     Active Substance: STANNOUS FLUORIDE
     Indication: Gingival disorder
     Dosage: EXPDATE:20251031
  2. SENSODYNE [Suspect]
     Active Substance: POTASSIUM NITRATE\SODIUM FLUORIDE
     Indication: Product used for unknown indication
  3. STANNOUS FLUORIDE [Suspect]
     Active Substance: STANNOUS FLUORIDE
     Indication: Gingival disorder

REACTIONS (5)
  - Lichen planus [Recovered/Resolved]
  - Oral disorder [Recovered/Resolved]
  - Gingival erythema [Recovered/Resolved]
  - Oral mucosal exfoliation [Recovered/Resolved]
  - Oral pain [Recovered/Resolved]

NARRATIVE: CASE EVENT DATE: 20240724
